FAERS Safety Report 6069252-9 (Version None)
Quarter: 2009Q1

REPORT INFORMATION
  Report Type: 
  Country: None (occurrence: None)
  Receive Date: 20090206
  Receipt Date: 20090204
  Transmission Date: 20090719
  Serious: Yes (Death, Hospitalization)
  Sender: FDA-Public Use
  Company Number: PHHY2009DO03765

PATIENT
  Age: 63 Year
  Sex: Male

DRUGS (6)
  1. TEGRETOL [Suspect]
     Indication: POST PROCEDURAL COMPLICATION
     Dosage: UNK
     Route: 048
     Dates: start: 20090101
  2. PANTECTA [Concomitant]
     Dosage: UNK
     Route: 048
  3. CEFTRIAXONE [Concomitant]
     Dosage: UNK
  4. ACETAMINOPHEN [Concomitant]
     Dosage: UNK
  5. GABAPENTIN [Concomitant]
     Dosage: UNK
  6. PREDNISONE [Concomitant]
     Dosage: UNK

REACTIONS (4)
  - BONE MARROW FAILURE [None]
  - DEATH [None]
  - MECHANICAL VENTILATION [None]
  - STEVENS-JOHNSON SYNDROME [None]
